FAERS Safety Report 9315244 (Version 1)
Quarter: 2013Q2

REPORT INFORMATION
  Report Type: Spontaneous
  Country: US (occurrence: US)
  Receive Date: 20130529
  Receipt Date: 20130529
  Transmission Date: 20140414
  Serious: Yes (Hospitalization)
  Sender: FDA-Public Use
  Company Number: US-BRISTOL-MYERS SQUIBB COMPANY-18953562

PATIENT
  Age: 57 Year
  Sex: Male

DRUGS (8)
  1. BYETTA [Suspect]
     Dosage: DOSE INCREASED TO 10MG
  2. GLUCOPHAGE [Suspect]
  3. AVANDIA [Concomitant]
  4. ALLOPURINOL [Concomitant]
  5. TRICOR [Concomitant]
  6. LIPITOR [Concomitant]
  7. QUINAPRIL [Concomitant]
  8. METFORMIN [Concomitant]

REACTIONS (1)
  - Pancreatitis [Recovering/Resolving]
